FAERS Safety Report 23921711 (Version 1)
Quarter: 2024Q2

REPORT INFORMATION
  Report Type: Spontaneous
  Country: CN (occurrence: CN)
  Receive Date: 20240530
  Receipt Date: 20240530
  Transmission Date: 20240716
  Serious: Yes (Hospitalization, Other)
  Sender: FDA-Public Use
  Company Number: CN-BAYER-2024A078149

PATIENT
  Age: 72 Year
  Sex: Male
  Weight: 59 kg

DRUGS (1)
  1. XARELTO [Suspect]
     Active Substance: RIVAROXABAN
     Indication: Arteriosclerosis coronary artery
     Dosage: 15 MG, QD
     Route: 048
     Dates: start: 20240313, end: 20240507

REACTIONS (3)
  - Cardiac failure chronic [Unknown]
  - Prothrombin time prolonged [Recovering/Resolving]
  - Off label use [Unknown]

NARRATIVE: CASE EVENT DATE: 20240313
